FAERS Safety Report 18687477 (Version 1)
Quarter: 2020Q4

REPORT INFORMATION
  Report Type: Spontaneous
  Country: US (occurrence: US)
  Receive Date: 20201231
  Receipt Date: 20201231
  Transmission Date: 20210114
  Serious: No
  Sender: FDA-Public Use
  Company Number: US-009507513-2012USA001100

PATIENT
  Sex: Female

DRUGS (1)
  1. PROVENTIL [Suspect]
     Active Substance: ALBUTEROL
     Indication: RESPIRATORY DISORDER
     Dosage: 108 MCG
     Dates: start: 20201111

REACTIONS (2)
  - Device malfunction [Unknown]
  - Poor quality device used [Unknown]

NARRATIVE: CASE EVENT DATE: 2020
